FAERS Safety Report 9315239 (Version 1)
Quarter: 2013Q2

REPORT INFORMATION
  Report Type: Spontaneous
  Country: US (occurrence: US)
  Receive Date: 20130529
  Receipt Date: 20130529
  Transmission Date: 20140414
  Serious: Yes (Hospitalization)
  Sender: FDA-Public Use
  Company Number: US200905002111

PATIENT
  Age: 69 Year
  Sex: Female
  Weight: 145.5 kg

DRUGS (21)
  1. BYETTA PEN DISPOSABLE [Suspect]
     Indication: DIABETES MELLITUS
     Dates: start: 200612, end: 20070517
  2. EXENATIDE UNK STRENGTH PEN, DISPOSABLE DEVICE [Concomitant]
  3. INSULIN [Concomitant]
  4. GLUCOTROL [Concomitant]
     Dosage: DOSE VALUE:10MG
     Route: 048
  5. LIPITOR [Concomitant]
     Route: 048
  6. ENALAPRIL [Concomitant]
     Route: 048
  7. FUROSEMIDE [Concomitant]
     Route: 048
  8. SINEQUAN [Concomitant]
  9. ALLOPURINOL [Concomitant]
  10. ALBUTEROL [Concomitant]
  11. IRON [Concomitant]
  12. QVAR [Concomitant]
  13. OMEPRAZOLE [Concomitant]
  14. LANTUS [Concomitant]
  15. AVANDIA [Concomitant]
  16. HYDROCODONE [Concomitant]
  17. GLUCOPHAGE [Concomitant]
     Dosage: 1DF:1000 UNIT NOS
  18. ASPIRIN [Concomitant]
  19. ZANTAC [Concomitant]
     Route: 048
  20. LASIX [Concomitant]
  21. SINEQUAN [Concomitant]
     Dosage: DOSE VALUE:50MG

REACTIONS (6)
  - Renal failure [Recovering/Resolving]
  - Blood glucose decreased [Recovered/Resolved]
  - Anaemia [Not Recovered/Not Resolved]
  - Vomiting [Recovered/Resolved]
  - Dehydration [Unknown]
  - Off label use [Unknown]
